FAERS Safety Report 18072089 (Version 25)
Quarter: 2023Q4

REPORT INFORMATION
  Report Type: Spontaneous
  Country: US (occurrence: US)
  Receive Date: 20200727
  Receipt Date: 20231124
  Transmission Date: 20240109
  Serious: Yes (Other)
  Sender: FDA-Public Use
  Company Number: US-PFIZER INC-2020284404

PATIENT
  Age: 63 Year
  Sex: Female
  Weight: 70.748 kg

DRUGS (2)
  1. LORBRENA [Suspect]
     Active Substance: LORLATINIB
     Indication: Lung adenocarcinoma
     Dosage: 100 MG
     Dates: start: 201902, end: 202212
  2. LORBRENA [Suspect]
     Active Substance: LORLATINIB
     Dosage: 100 MG, DAILY
     Route: 048

REACTIONS (10)
  - Renal disorder [Unknown]
  - Neoplasm progression [Unknown]
  - Dyspnoea exertional [Unknown]
  - Libido decreased [Unknown]
  - Pain in extremity [Unknown]
  - Poor quality sleep [Unknown]
  - Hypersomnia [Unknown]
  - Fall [Unknown]
  - Decreased appetite [Unknown]
  - Weight increased [Unknown]

NARRATIVE: CASE EVENT DATE: 20200906
